FAERS Safety Report 9442710 (Version 2)
Quarter: 2013Q4

REPORT INFORMATION
  Report Type: Spontaneous
  Country: IT (occurrence: IT)
  Receive Date: 20130806
  Receipt Date: 20131115
  Transmission Date: 20140711
  Serious: Yes (Hospitalization)
  Sender: FDA-Public Use
  Company Number: PHHY2013IT082025

PATIENT
  Age: 42 Year
  Sex: Male

DRUGS (2)
  1. AMOXICILLIN + CLAVULANATE POTASSIUM [Suspect]
     Indication: TOOTH ABSCESS
     Dosage: 1000 MG, TOTAL DOSE
     Route: 048
     Dates: start: 20130716, end: 20130716
  2. KETOPROFEN [Concomitant]
     Dates: start: 20130712, end: 20130716

REACTIONS (2)
  - Rhabdomyolysis [Recovered/Resolved]
  - Anaphylactic shock [Recovered/Resolved]
